FAERS Safety Report 4353008-9 (Version None)
Quarter: 2004Q2

REPORT INFORMATION
  Report Type: 
  Country: None (occurrence: None)
  Receive Date: 20040430
  Receipt Date: 20040109
  Transmission Date: 20050107
  Serious: No
  Sender: FDA-Public Use
  Company Number: 204133

PATIENT
  Age: 31 Year
  Sex: Female
  Weight: 66.8 kg

DRUGS (5)
  1. XOLAIR [Suspect]
     Indication: ASTHMA
     Dosage: 150 MG, 1/MONTH, SUBCUTANEOUS
     Route: 058
     Dates: start: 20031215, end: 20031215
  2. SINGULAR (MONTELUKAST SODIUM) [Concomitant]
  3. ADVAIR DISKUS [Concomitant]
  4. ATROVENT [Concomitant]
  5. ALBUTEROL (ALBUTEROL SULFATE) [Concomitant]

REACTIONS (4)
  - BLOOD PROLACTIN INCREASED [None]
  - HYPERTROPHY BREAST [None]
  - INJECTION SITE PAIN [None]
  - PAIN IN EXTREMITY [None]
